FAERS Safety Report 10783748 (Version 3)
Quarter: 2015Q3

REPORT INFORMATION
  Report Type: Report from Study
  Country: US (occurrence: US)
  Receive Date: 20150210
  Receipt Date: 20150819
  Transmission Date: 20151125
  Serious: No
  Sender: FDA-Public Use
  Company Number: US-GILEAD-2015-0136334

PATIENT
  Age: 10 Year
  Sex: Female

DRUGS (6)
  1. ORENITRAM [Concomitant]
     Active Substance: TREPROSTINIL
  2. AMBRISENTAN [Suspect]
     Active Substance: AMBRISENTAN
     Indication: CONGENITAL DIAPHRAGMATIC HERNIA
  3. AMBRISENTAN [Suspect]
     Active Substance: AMBRISENTAN
     Indication: PULMONARY HYPERTENSION
     Dosage: 10 MG, QD
     Route: 065
     Dates: start: 20140707
  4. AMBRISENTAN [Suspect]
     Active Substance: AMBRISENTAN
     Indication: HEART DISEASE CONGENITAL
  5. TYVASO [Concomitant]
     Active Substance: TREPROSTINIL
  6. ADCIRCA [Concomitant]
     Active Substance: TADALAFIL

REACTIONS (3)
  - Pain in jaw [Unknown]
  - Off label use [Unknown]
  - Jaw disorder [Unknown]
